FAERS Safety Report 10377871 (Version 1)
Quarter: 2014Q3

REPORT INFORMATION
  Report Type: Report from Study
  Country: AR (occurrence: AR)
  Receive Date: 20140812
  Receipt Date: 20140812
  Transmission Date: 20150326
  Serious: Yes (Death, Other)
  Sender: FDA-Public Use
  Company Number: PHHY2014AR099008

PATIENT
  Sex: Female

DRUGS (2)
  1. DIOVAN D [Suspect]
     Active Substance: HYDROCHLOROTHIAZIDE\VALSARTAN
     Dosage: 0.5 DF (320/12.5 MG) IN THE MORNING AND 0.5 DF (320/12.5 MG) AT NIGHT
  2. GALVUS [Suspect]
     Active Substance: VILDAGLIPTIN
     Dosage: UNK UKN, UNK

REACTIONS (1)
  - Neoplasm malignant [Fatal]
